FAERS Safety Report 23537444 (Version 1)
Quarter: 2024Q1

REPORT INFORMATION
  Report Type: Spontaneous
  Country: PT (occurrence: PT)
  Receive Date: 20240219
  Receipt Date: 20240219
  Transmission Date: 20240410
  Serious: Yes (Other)
  Sender: FDA-Public Use
  Company Number: PT-AMGEN-PRTSP2024029287

PATIENT
  Age: 23 Year
  Sex: Female

DRUGS (1)
  1. ADALIMUMAB [Suspect]
     Active Substance: ADALIMUMAB\ISOPROPYL ALCOHOL
     Indication: Crohn^s disease
     Dosage: UNK, FOR 10 MONTHS
     Route: 065

REACTIONS (2)
  - Obliterative bronchiolitis [Recovered/Resolved]
  - Pulmonary tuberculosis [Recovered/Resolved]
